FAERS Safety Report 6460400-5 (Version None)
Quarter: 2009Q4

REPORT INFORMATION
  Report Type: 
  Country: None (occurrence: None)
  Receive Date: 20091123
  Receipt Date: 20091116
  Transmission Date: 20100525
  Serious: Yes (Death, Hospitalization)
  Sender: FDA-Public Use
  Company Number: WAES 0807USA04472

PATIENT
  Age: 81 Year
  Sex: Male
  Weight: 65.7716 kg

DRUGS (30)
  1. CAP VORINOSTAT UNK [Suspect]
     Indication: ACUTE MYELOID LEUKAEMIA
     Dosage: 400 MG/DAILY/PO
     Route: 048
     Dates: start: 20080303, end: 20080316
  2. CAP VORINOSTAT UNK [Suspect]
     Indication: ACUTE MYELOID LEUKAEMIA
     Dosage: 400 MG/DAILY/PO
     Route: 048
     Dates: start: 20080331, end: 20080413
  3. CAP VORINOSTAT UNK [Suspect]
     Indication: ACUTE MYELOID LEUKAEMIA
     Dosage: 400 MG/DAILY/PO
     Route: 048
     Dates: start: 20080428, end: 20080511
  4. CAP VORINOSTAT UNK [Suspect]
     Indication: ACUTE MYELOID LEUKAEMIA
     Dosage: 400 MG/DAILY/PO
     Route: 048
     Dates: start: 20080605, end: 20080618
  5. CAP VORINOSTAT UNK [Suspect]
     Indication: ACUTE MYELOID LEUKAEMIA
     Dosage: 400 MG/DAILY/PO
     Route: 048
     Dates: start: 20080717, end: 20080730
  6. DECITABINE 20 MG, 37.4 MG [Suspect]
     Indication: ACUTE MYELOID LEUKAEMIA
     Dosage: 38.2 MG/DAILY/IV, 38.4 MG/DAILY/IV, 37.4 MG/DAILY/IV, 36.8 MG/DAILY/IV
     Route: 042
     Dates: start: 20080303, end: 20080307
  7. DECITABINE 20 MG, 37.4 MG [Suspect]
     Indication: ACUTE MYELOID LEUKAEMIA
     Dosage: 38.2 MG/DAILY/IV, 38.4 MG/DAILY/IV, 37.4 MG/DAILY/IV, 36.8 MG/DAILY/IV
     Route: 042
     Dates: start: 20080331, end: 20080404
  8. DECITABINE 20 MG, 37.4 MG [Suspect]
     Indication: ACUTE MYELOID LEUKAEMIA
     Dosage: 38.2 MG/DAILY/IV, 38.4 MG/DAILY/IV, 37.4 MG/DAILY/IV, 36.8 MG/DAILY/IV
     Route: 042
     Dates: start: 20080428, end: 20080502
  9. DECITABINE 20 MG, 37.4 MG [Suspect]
     Indication: ACUTE MYELOID LEUKAEMIA
     Dosage: 38.2 MG/DAILY/IV, 38.4 MG/DAILY/IV, 37.4 MG/DAILY/IV, 36.8 MG/DAILY/IV
     Route: 042
     Dates: start: 20080605, end: 20080609
  10. DECITABINE 20 MG, 37.4 MG [Suspect]
     Indication: ACUTE MYELOID LEUKAEMIA
     Dosage: 38.2 MG/DAILY/IV, 38.4 MG/DAILY/IV, 37.4 MG/DAILY/IV, 36.8 MG/DAILY/IV
     Route: 042
     Dates: start: 20080717, end: 20080721
  11. ASACOL [Concomitant]
  12. CELEXA [Concomitant]
  13. COMPAZINE [Concomitant]
  14. FLOMAX (MORNIFLUMATE) [Concomitant]
  15. IMODIUM [Concomitant]
  16. MEGACE [Concomitant]
  17. PROTONIX [Concomitant]
  18. TYLENOL (CAPLET) [Concomitant]
  19. UNISOM (DIPHENHYDRAMINE HYDROCHL [Concomitant]
  20. ZOCOR [Concomitant]
  21. ACYCLOVIR [Concomitant]
  22. CLOTRIMAZOLE [Concomitant]
  23. CYANOCOBALAMIN [Concomitant]
  24. DIPHENHYDRAMINE HYDROCHLORIDE [Concomitant]
  25. METOPROLOL [Concomitant]
  26. ONDANSETRON [Concomitant]
  27. OXYCODONE [Concomitant]
  28. POTASSIUM CHLORIDE [Concomitant]
  29. SIMVASTATIN [Concomitant]
  30. VITAMINS (UNSPECIFIED) [Concomitant]

REACTIONS (23)
  - ACUTE MYELOID LEUKAEMIA [None]
  - ACUTE MYOCARDIAL INFARCTION [None]
  - ARTERIOSCLEROSIS [None]
  - ATRIAL TACHYCARDIA [None]
  - BLOOD CHLORIDE INCREASED [None]
  - BLOOD GLUCOSE INCREASED [None]
  - BLOOD MAGNESIUM INCREASED [None]
  - DEHYDRATION [None]
  - DIVERTICULUM INTESTINAL [None]
  - EXTRADURAL HAEMATOMA [None]
  - FALL [None]
  - MALIGNANT NEOPLASM PROGRESSION [None]
  - NORMAL PRESSURE HYDROCEPHALUS [None]
  - OESOPHAGEAL CANDIDIASIS [None]
  - OESOPHAGITIS [None]
  - PNEUMONIA [None]
  - SIALOADENITIS [None]
  - SINUS TACHYCARDIA [None]
  - SOMNOLENCE [None]
  - SUBDURAL HAEMATOMA [None]
  - SUPRAVENTRICULAR EXTRASYSTOLES [None]
  - URINARY RETENTION [None]
  - URINE OUTPUT DECREASED [None]
